FAERS Safety Report 8137939-X (Version None)
Quarter: 2012Q1

REPORT INFORMATION
  Report Type: 
  Country: None (occurrence: None)
  Receive Date: 20120213
  Receipt Date: 20120206
  Transmission Date: 20120608
  Serious: Yes (Life-Threatening, Hospitalization, Other)
  Sender: FDA-Public Use
  Company Number: AUR-APL-2011-05469

PATIENT
  Age: 48 Year
  Sex: Female

DRUGS (1)
  1. LAMOTRIGINE [Suspect]
     Indication: PRODUCT USED FOR UNKNOWN INDICATION
     Dosage: (7.5 GM), ORAL (100 MG), ORAL
     Route: 048

REACTIONS (7)
  - CLONUS [None]
  - GRAND MAL CONVULSION [None]
  - PULSE ABSENT [None]
  - QRS AXIS ABNORMAL [None]
  - HYPERREFLEXIA [None]
  - STATUS EPILEPTICUS [None]
  - TACHYCARDIA [None]
